FAERS Safety Report 13323008 (Version 1)
Quarter: 2017Q1

REPORT INFORMATION
  Report Type: Report from Study
  Country: US (occurrence: US)
  Receive Date: 20170310
  Receipt Date: 20170310
  Transmission Date: 20170428
  Serious: Yes (Hospitalization)
  Sender: FDA-Public Use
  Company Number: US-BAYER-2017-030141

PATIENT
  Age: 69 Year
  Sex: Female

DRUGS (1)
  1. STIVARGA [Suspect]
     Active Substance: REGORAFENIB
     Indication: COLORECTAL CANCER
     Dosage: 160 MG, DAILY
     Route: 048
     Dates: start: 20170208, end: 20170301

REACTIONS (9)
  - Heart rate irregular [None]
  - Fatigue [None]
  - Oropharyngeal pain [None]
  - Blood pressure increased [None]
  - Asthenia [None]
  - Blood pressure fluctuation [None]
  - Dizziness [None]
  - Neuropathy peripheral [None]
  - Cough [None]

NARRATIVE: CASE EVENT DATE: 201702
